FAERS Safety Report 11537687 (Version 1)
Quarter: 2015Q3

REPORT INFORMATION
  Report Type: Spontaneous
  Country: DE (occurrence: DE)
  Receive Date: 20150922
  Receipt Date: 20150922
  Transmission Date: 20151125
  Serious: Yes (Other)
  Sender: FDA-Public Use
  Company Number: GXKR2015DE004390

PATIENT

DRUGS (1)
  1. ZIPRASIDONE. [Suspect]
     Active Substance: ZIPRASIDONE
     Indication: PSYCHOTIC DISORDER
     Dosage: 1-0-0-1
     Route: 048

REACTIONS (1)
  - Abortion [Unknown]
